FAERS Safety Report 21066660 (Version 3)
Quarter: 2022Q3

REPORT INFORMATION
  Report Type: Report from Study
  Country: ES (occurrence: ES)
  Receive Date: 20220711
  Receipt Date: 20220727
  Transmission Date: 20221027
  Serious: Yes (Life-Threatening, Hospitalization)
  Sender: FDA-Public Use
  Company Number: ES-JNJFOC-20220664320

PATIENT
  Sex: Male

DRUGS (1)
  1. IBRUTINIB [Suspect]
     Active Substance: IBRUTINIB
     Indication: Chronic lymphocytic leukaemia
     Route: 048
     Dates: start: 20210706, end: 20220513

REACTIONS (3)
  - COVID-19 [Recovered/Resolved]
  - Mechanical ventilation [Unknown]
  - Tracheostomy [Unknown]

NARRATIVE: CASE EVENT DATE: 20220513
